FAERS Safety Report 9146051 (Version 3)
Quarter: 2013Q1

REPORT INFORMATION
  Report Type: Spontaneous
  Country: US (occurrence: US)
  Receive Date: 20130307
  Receipt Date: 20130328
  Transmission Date: 20140127
  Serious: Yes (Death)
  Sender: FDA-Public Use
  Company Number: PHEH2013US005419

PATIENT
  Sex: Female

DRUGS (6)
  1. GLEEVEC [Suspect]
     Indication: THYROID DISORDER
     Dosage: 100 MG, QID
     Route: 048
     Dates: start: 20121019, end: 20130215
  2. ATENOLOL [Concomitant]
     Dosage: UNK UKN, UNK
  3. PREDNISONE [Concomitant]
     Dosage: UNK UKN, UNK
  4. CLONAZEPAM [Concomitant]
     Dosage: UNK UKN, UNK
  5. FUROSEMIDE [Concomitant]
     Dosage: UNK UKN, UNK
  6. KLOR-CON [Concomitant]
     Dosage: UNK UKN, UNK

REACTIONS (3)
  - Neoplasm malignant [Fatal]
  - Conjunctival haemorrhage [Unknown]
  - Oedema [Unknown]
